FAERS Safety Report 4844109-7 (Version None)
Quarter: 2005Q4

REPORT INFORMATION
  Report Type: 
  Country: None (occurrence: None)
  Receive Date: 20051202
  Receipt Date: 20051123
  Transmission Date: 20060501
  Serious: Yes (Other)
  Sender: FDA-Public Use
  Company Number: BE-ROCHE-425823

PATIENT

DRUGS (2)
  1. PEGASYS [Suspect]
     Route: 065
     Dates: start: 20050615
  2. COPEGUS [Suspect]
     Route: 065
     Dates: start: 20050615, end: 20051015

REACTIONS (2)
  - HYPERTHYROIDISM [None]
  - THYROID GLAND SCAN ABNORMAL [None]
